FAERS Safety Report 4946119-8 (Version None)
Quarter: 2006Q1

REPORT INFORMATION
  Report Type: 
  Country: None (occurrence: None)
  Receive Date: 20060316
  Receipt Date: 20050803
  Transmission Date: 20060701
  Serious: Yes (Hospitalization)
  Sender: FDA-Public Use
  Company Number: FR-MERCK-0508FRA00006

PATIENT
  Age: 73 Year
  Sex: Male
  Weight: 89 kg

DRUGS (13)
  1. DILTIAZEM HYDROCHLORIDE [Suspect]
     Indication: ISCHAEMIC CARDIOMYOPATHY
     Route: 048
     Dates: end: 20050626
  2. DILTIAZEM HYDROCHLORIDE [Suspect]
     Route: 048
     Dates: start: 20050701
  3. ALLOPURINOL [Suspect]
     Route: 048
     Dates: end: 20050703
  4. METFORMIN [Suspect]
     Indication: DIABETES MELLITUS
     Route: 048
     Dates: end: 20050628
  5. RAMIPRIL [Suspect]
     Indication: ISCHAEMIC CARDIOMYOPATHY
     Route: 048
     Dates: end: 20050701
  6. CLOPIDOGREL BISULFATE [Suspect]
     Indication: CORONARY ARTERY DISEASE
     Route: 048
     Dates: end: 20050703
  7. ACEPROMAZINE AND ACEPROMETAZINE AND CLORAZEPATE DIPOTASSIUM [Suspect]
     Route: 048
     Dates: end: 20050703
  8. ACETAMINOPHEN [Suspect]
     Route: 048
     Dates: end: 20050703
  9. PENTOXIFYLLINE [Suspect]
     Route: 065
     Dates: end: 20050703
  10. ZOCOR [Suspect]
     Indication: ISCHAEMIC CARDIOMYOPATHY
     Route: 048
     Dates: end: 20050703
  11. ZOCOR [Suspect]
     Route: 048
     Dates: start: 20050801, end: 20050801
  12. ACEBUTOLOL [Suspect]
     Indication: ISCHAEMIC CARDIOMYOPATHY
     Route: 048
     Dates: end: 20050703
  13. ACEBUTOLOL [Suspect]
     Route: 048
     Dates: start: 20050801, end: 20050801

REACTIONS (4)
  - ASTHENIA [None]
  - PULMONARY FIBROSIS [None]
  - PYREXIA [None]
  - SEPSIS [None]
